FAERS Safety Report 7203674-5 (Version None)
Quarter: 2010Q4

REPORT INFORMATION
  Report Type: 
  Country: None (occurrence: None)
  Receive Date: 20101230
  Receipt Date: 20101216
  Transmission Date: 20110411
  Serious: Yes (Other)
  Sender: FDA-Public Use
  Company Number: PHHY2010JP09445

PATIENT
  Sex: Female
  Weight: 48 kg

DRUGS (3)
  1. EXJADE [Suspect]
     Indication: THALASSAEMIA ALPHA
     Dosage: 1000 MG DAILY
     Route: 048
     Dates: start: 20080918, end: 20081120
  2. URSO 250 [Concomitant]
     Indication: LIVER DISORDER
     Dosage: 300 MG, UNK
     Route: 048
     Dates: start: 20080117
  3. DESFERAL [Concomitant]
     Indication: IRON OVERLOAD
     Dosage: 500 MG, UNK
     Route: 030
     Dates: start: 20050701, end: 20080918

REACTIONS (3)
  - CONDITION AGGRAVATED [None]
  - NEOPLASM MALIGNANT [None]
  - RENAL IMPAIRMENT [None]
